FAERS Safety Report 9968955 (Version 1)
Quarter: 2014Q1

REPORT INFORMATION
  Report Type: Report from Study
  Country: US (occurrence: US)
  Receive Date: 20140306
  Receipt Date: 20140306
  Transmission Date: 20141002
  Serious: No
  Sender: FDA-Public Use
  Company Number: US-ABBVIE-13P-163-1141064-00

PATIENT
  Age: 62 Year
  Sex: Female

DRUGS (10)
  1. HUMIRA [Suspect]
     Indication: RHEUMATOID ARTHRITIS
     Dates: start: 2012, end: 2013
  2. HUMIRA [Suspect]
     Dates: start: 2013, end: 201306
  3. HUMIRA [Suspect]
     Dates: start: 201307
  4. HUMIRA [Suspect]
  5. ESTRACE VAGINAL [Concomitant]
     Indication: PRODUCT USED FOR UNKNOWN INDICATION
     Route: 067
  6. PREDNISONE [Concomitant]
     Indication: PRODUCT USED FOR UNKNOWN INDICATION
     Dates: start: 20130801, end: 20130801
  7. PREDNISONE [Concomitant]
     Dosage: TAPER
     Dates: start: 201308, end: 201308
  8. PREDNISONE [Concomitant]
     Dates: start: 201308, end: 201308
  9. PREDNISONE [Concomitant]
     Dosage: TAPER
     Dates: start: 201308, end: 201308
  10. PLAQUENIL [Concomitant]
     Indication: PRODUCT USED FOR UNKNOWN INDICATION
     Dates: start: 20130801

REACTIONS (6)
  - Pyrexia [Recovering/Resolving]
  - Endodontic procedure [Recovering/Resolving]
  - Osteomyelitis [Recovering/Resolving]
  - Diarrhoea [Recovering/Resolving]
  - Rheumatoid arthritis [Recovering/Resolving]
  - Endodontic procedure [Recovering/Resolving]
